FAERS Safety Report 15695787 (Version 1)
Quarter: 2018Q4

REPORT INFORMATION
  Report Type: Spontaneous
  Country: US (occurrence: US)
  Receive Date: 20181206
  Receipt Date: 20181206
  Transmission Date: 20190205
  Serious: Yes (Life-Threatening, Other)
  Sender: FDA-Public Use
  Company Number: US-ASTRAZENECA-2018SF56700

PATIENT

DRUGS (1)
  1. PRILOSEC [Suspect]
     Active Substance: OMEPRAZOLE MAGNESIUM
     Route: 048

REACTIONS (9)
  - Clostridium difficile colitis [Unknown]
  - Peripheral swelling [Unknown]
  - Diarrhoea [Unknown]
  - Thrombosis [Unknown]
  - Renal failure [Unknown]
  - Diabetes mellitus [Unknown]
  - Hypertension [Unknown]
  - Weight decreased [Unknown]
  - Renal disorder [Unknown]

NARRATIVE: CASE EVENT DATE: 2003
